FAERS Safety Report 18559275 (Version 1)
Quarter: 2020Q4

REPORT INFORMATION
  Report Type: Spontaneous
  Country: JP (occurrence: JP)
  Receive Date: 20201130
  Receipt Date: 20201130
  Transmission Date: 20210114
  Serious: Yes (Other)
  Sender: FDA-Public Use
  Company Number: JP-JNJFOC-20201151673

PATIENT
  Age: 10 Decade

DRUGS (1)
  1. RISPERDAL [Suspect]
     Active Substance: RISPERIDONE
     Indication: PRODUCT USED FOR UNKNOWN INDICATION
     Dosage: DOSE UNKNOWN, P.R.N
     Route: 048

REACTIONS (3)
  - Inappropriate schedule of product administration [Unknown]
  - Subdural haematoma [Unknown]
  - Off label use [Unknown]
